FAERS Safety Report 10872756 (Version 1)
Quarter: 2015Q1

REPORT INFORMATION
  Report Type: Spontaneous
  Country: FR (occurrence: FR)
  Receive Date: 20150227
  Receipt Date: 20150227
  Transmission Date: 20150721
  Serious: Yes (Other)
  Sender: FDA-Public Use
  Company Number: FR-ROCHE-1545402

PATIENT
  Age: 25 Year
  Sex: Male

DRUGS (8)
  1. LOXAPAC [Concomitant]
     Active Substance: LOXAPINE SUCCINATE
  2. CLOZAPINE. [Suspect]
     Active Substance: CLOZAPINE
     Indication: PRODUCT USED FOR UNKNOWN INDICATION
     Dosage: PROGRESSIVELY INCREASED TO 150MG DAILY.
     Route: 048
     Dates: start: 20141028, end: 20141107
  3. VALIUM [Suspect]
     Active Substance: DIAZEPAM
     Indication: PRODUCT USED FOR UNKNOWN INDICATION
     Route: 048
     Dates: start: 20140716
  4. DEPAKINE CHRONO [Suspect]
     Active Substance: VALPROATE SODIUM
     Indication: PRODUCT USED FOR UNKNOWN INDICATION
     Route: 048
     Dates: end: 20150114
  5. CUTACNYL [Concomitant]
     Active Substance: BENZOYL PEROXIDE
     Route: 003
  6. DICLOFENAC [Concomitant]
     Active Substance: DICLOFENAC
     Route: 003
  7. PARACETAMOL [Concomitant]
     Active Substance: ACETAMINOPHEN
  8. SERTRALINE [Suspect]
     Active Substance: SERTRALINE HYDROCHLORIDE
     Indication: PRODUCT USED FOR UNKNOWN INDICATION
     Route: 048
     Dates: start: 20141028, end: 20150102

REACTIONS (2)
  - Neutropenia [Not Recovered/Not Resolved]
  - Thrombocytopenia [Not Recovered/Not Resolved]

NARRATIVE: CASE EVENT DATE: 20141107
